FAERS Safety Report 6185584-8 (Version None)
Quarter: 2009Q2

REPORT INFORMATION
  Report Type: 
  Country: None (occurrence: None)
  Receive Date: 20090511
  Receipt Date: 20090428
  Transmission Date: 20091009
  Serious: Yes (Hospitalization, Other)
  Sender: FDA-Public Use
  Company Number: US-PFIZER INC-2008002061

PATIENT
  Sex: Female

DRUGS (8)
  1. CHANTIX [Suspect]
  2. TIOTROPIUM BROMIDE [Interacting]
     Route: 055
  3. ATROVENT [Interacting]
     Route: 055
  4. OTHER NERVOUS SYSTEM DRUGS [Interacting]
  5. ADVAIR HFA [Interacting]
  6. ALBUTEROL [Interacting]
     Route: 055
  7. MAVIK [Concomitant]
  8. NORVASC [Concomitant]

REACTIONS (28)
  - ASTHENIA [None]
  - BIPOLAR DISORDER [None]
  - BLOOD CHOLESTEROL INCREASED [None]
  - BLOOD GLUCOSE INCREASED [None]
  - BLOOD SODIUM DECREASED [None]
  - BRONCHITIS [None]
  - BURNING SENSATION [None]
  - CLUMSINESS [None]
  - CONVULSION [None]
  - COUGH [None]
  - DELUSION [None]
  - DEPRESSED MOOD [None]
  - DRUG INTERACTION [None]
  - DYSPEPSIA [None]
  - DYSPNOEA [None]
  - FATIGUE [None]
  - HOT FLUSH [None]
  - HYPERHIDROSIS [None]
  - INSOMNIA [None]
  - MANIA [None]
  - MELAENA [None]
  - MONOPLEGIA [None]
  - NAUSEA [None]
  - PAIN [None]
  - PNEUMONIA [None]
  - STRESS [None]
  - SUDDEN ONSET OF SLEEP [None]
  - WEIGHT INCREASED [None]
